FAERS Safety Report 10207216 (Version 1)
Quarter: 2014Q2

REPORT INFORMATION
  Report Type: Spontaneous
  Country: US (occurrence: US)
  Receive Date: 20140530
  Receipt Date: 20140530
  Transmission Date: 20141212
  Serious: No
  Sender: FDA-Public Use
  Company Number: US-GLAXOSMITHKLINE-A1024766A

PATIENT
  Age: 60 Year
  Sex: Female

DRUGS (1)
  1. VENTOLIN [Suspect]
     Indication: PRODUCT USED FOR UNKNOWN INDICATION
     Route: 065
     Dates: start: 20111128

REACTIONS (5)
  - Overdose [Unknown]
  - Viral infection [Unknown]
  - Malaise [Unknown]
  - Sinus disorder [Unknown]
  - Bronchitis [Unknown]
